FAERS Safety Report 4898522-2 (Version None)
Quarter: 2006Q1

REPORT INFORMATION
  Report Type: 
  Country: None (occurrence: None)
  Receive Date: 20060131
  Receipt Date: 20060131
  Transmission Date: 20060701
  Serious: Yes (Life-Threatening, Hospitalization)
  Sender: FDA-Public Use
  Company Number: None

PATIENT
  Age: 58 Year
  Sex: Female
  Weight: 67.1324 kg

DRUGS (1)
  1. EFFEXOR [Suspect]
     Dosage: 75 MGM QD

REACTIONS (9)
  - ECCHYMOSIS [None]
  - LARYNGEAL OEDEMA [None]
  - MUSCLE HAEMORRHAGE [None]
  - POST PROCEDURAL COMPLICATION [None]
  - POST PROCEDURAL HAEMORRHAGE [None]
  - POST PROCEDURAL OEDEMA [None]
  - PROCEDURAL SITE REACTION [None]
  - SKIN HAEMORRHAGE [None]
  - THYROID DISORDER [None]
